FAERS Safety Report 7701322-9 (Version None)
Quarter: 2011Q3

REPORT INFORMATION
  Report Type: 
  Country: None (occurrence: None)
  Receive Date: 20110822
  Receipt Date: 20110818
  Transmission Date: 20111222
  Serious: Yes (Other)
  Sender: FDA-Public Use
  Company Number: GB-JNJFOC-20110600727

PATIENT
  Sex: Female
  Weight: 65.5 kg

DRUGS (4)
  1. NICORETTE QUICKMIST [Suspect]
     Indication: SMOKING CESSATION THERAPY
     Dosage: SIX TO TEN SPRAYS DAILY
     Route: 048
     Dates: start: 20110503, end: 20110511
  2. NICOTINE [Suspect]
     Route: 048
     Dates: start: 20110501
  3. HYOSCINE [Concomitant]
     Indication: IRRITABLE BOWEL SYNDROME
     Route: 048
     Dates: start: 20110414, end: 20110421
  4. SCOPOLAMINE [Concomitant]
     Indication: IRRITABLE BOWEL SYNDROME

REACTIONS (3)
  - HYPOTENSION [None]
  - HEADACHE [None]
  - EPISTAXIS [None]
